FAERS Safety Report 9027913 (Version 1)
Quarter: 2013Q1

REPORT INFORMATION
  Report Type: Spontaneous
  Country: US (occurrence: None)
  Receive Date: 20130114
  Receipt Date: 20130114
  Transmission Date: 20140127
  Serious: Yes (Life-Threatening, Hospitalization, Disabling, Other)
  Sender: FDA-Public Use
  Company Number: None

PATIENT
  Sex: Male
  Weight: 53 kg

DRUGS (3)
  1. KETOCONAZOLE [Suspect]
     Indication: RASH
     Dosage: ABOUT THE 9TH TO 16TH
     Route: 048
  2. KETOCONAZOLE [Suspect]
     Indication: FUNGAL INFECTION
     Dosage: ABOUT THE 9TH TO 16TH
     Route: 048
  3. KETOCONAZOLE [Suspect]
     Dosage: DERMAL

REACTIONS (2)
  - Depression [None]
  - Psychotic disorder [None]
